FAERS Safety Report 10360820 (Version 1)
Quarter: 2014Q3

REPORT INFORMATION
  Report Type: Spontaneous
  Country: GB (occurrence: None)
  Receive Date: 20140731
  Receipt Date: 20140731
  Transmission Date: 20150326
  Serious: Yes (Hospitalization)
  Sender: FDA-Public Use
  Company Number: FK201402991

PATIENT
  Age: 62 Year
  Sex: Male
  Weight: 75.6 kg

DRUGS (6)
  1. GEMCITABINE [Suspect]
     Active Substance: GEMCITABINE\GEMCITABINE HYDROCHLORIDE
     Indication: PANCREATIC CARCINOMA METASTATIC
     Dates: start: 20140526
  2. ABRAXANE [Suspect]
     Active Substance: PACLITAXEL
     Indication: PANCREATIC CARCINOMA METASTATIC
     Route: 041
     Dates: start: 20140526
  3. METOCLOPRAMIDE ( METOCLOPRAMIDE) [Concomitant]
  4. MST CONTINUS ( MORPHINE SULFATE) [Concomitant]
  5. CO-DANTHRAMER ( DORBANEX/00161701) [Concomitant]
  6. ORAMORPH ( MORPHINE SULFATE PENTAHYDRATE) [Concomitant]

REACTIONS (3)
  - Hypokinesia [None]
  - Cerebrovascular accident [None]
  - Pain in extremity [None]

NARRATIVE: CASE EVENT DATE: 20140527
